FAERS Safety Report 21855014 (Version 2)
Quarter: 2023Q1

REPORT INFORMATION
  Report Type: Spontaneous
  Country: CA (occurrence: CA)
  Receive Date: 20230112
  Receipt Date: 20230123
  Transmission Date: 20230418
  Serious: Yes (Death, Hospitalization)
  Sender: FDA-Public Use
  Company Number: CA-TEVA-2023-CA-2843159

PATIENT
  Age: 57 Year
  Sex: Male

DRUGS (12)
  1. CARBOPLATIN [Suspect]
     Active Substance: CARBOPLATIN
     Indication: Diffuse large B-cell lymphoma
     Dosage: R-ICE REGIMEN; FIRST CYCLE
     Route: 065
     Dates: start: 20201201
  2. CARBOPLATIN [Suspect]
     Active Substance: CARBOPLATIN
     Dosage: R-ICE REGIMEN; SECOND CYCLE
     Route: 065
     Dates: start: 20201223
  3. CARBOPLATIN [Suspect]
     Active Substance: CARBOPLATIN
     Dosage: R-ICE REGIMEN; THIRD CYCLE
     Route: 065
     Dates: start: 20210205
  4. ETOPOSIDE [Suspect]
     Active Substance: ETOPOSIDE
     Indication: Diffuse large B-cell lymphoma
     Dosage: R-ICE REGIMEN; FIRST CYCLE
     Route: 065
     Dates: start: 20201201
  5. ETOPOSIDE [Suspect]
     Active Substance: ETOPOSIDE
     Dosage: R-ICE REGIMEN; SECOND CYCLE
     Route: 065
     Dates: start: 20201223
  6. ETOPOSIDE [Suspect]
     Active Substance: ETOPOSIDE
     Dosage: R-ICE REGIMEN; THIRD CYCLE
     Route: 065
     Dates: start: 20210205
  7. RITUXIMAB [Suspect]
     Active Substance: RITUXIMAB
     Indication: Diffuse large B-cell lymphoma
     Dosage: R-ICE REGIMEN; FIRST CYCLE
     Route: 065
     Dates: start: 20201201
  8. RITUXIMAB [Suspect]
     Active Substance: RITUXIMAB
     Dosage: R-ICE REGIMEN; SECOND CYCLE
     Route: 065
     Dates: start: 20201223
  9. RITUXIMAB [Suspect]
     Active Substance: RITUXIMAB
     Dosage: R-ICE REGIMEN; THIRD CYCLE
     Route: 065
     Dates: start: 20210205
  10. IFOSFAMIDE [Suspect]
     Active Substance: IFOSFAMIDE
     Indication: Diffuse large B-cell lymphoma
     Dosage: R-ICE REGIMEN; FIRST CYCLE
     Route: 065
     Dates: start: 20201201
  11. IFOSFAMIDE [Suspect]
     Active Substance: IFOSFAMIDE
     Dosage: R-ICE REGIMEN; SECOND CYCLE
     Route: 065
     Dates: start: 20201223
  12. IFOSFAMIDE [Suspect]
     Active Substance: IFOSFAMIDE
     Dosage: R-ICE REGIMEN; THIRD CYCLE
     Route: 065
     Dates: start: 20210205

REACTIONS (2)
  - Post-acute COVID-19 syndrome [Fatal]
  - COVID-19 [Fatal]

NARRATIVE: CASE EVENT DATE: 20201224
